FAERS Safety Report 15560404 (Version 1)
Quarter: 2018Q4

REPORT INFORMATION
  Report Type: Spontaneous
  Country: US (occurrence: US)
  Receive Date: 20181028
  Receipt Date: 20181028
  Transmission Date: 20190205
  Serious: Yes (Disabling, Other)
  Sender: FDA-Public Use
  Company Number: None

PATIENT
  Age: 35 Year
  Sex: Male
  Weight: 99 kg

DRUGS (4)
  1. INHAILER [Concomitant]
  2. PREDNESILONE ORAL RINSE [Concomitant]
  3. INVEGA SUSTENNA [Suspect]
     Active Substance: PALIPERIDONE PALMITATE
     Indication: SCHIZOPHRENIA
     Dosage: ?          QUANTITY:1 INJECTION(S);OTHER FREQUENCY:MONTHLY;?
     Route: 030
     Dates: start: 20091101
  4. RHINOCORT [Concomitant]
     Active Substance: BUDESONIDE

REACTIONS (6)
  - Asthma [None]
  - Disease recurrence [None]
  - Sinusitis [None]
  - Ill-defined disorder [None]
  - Autoimmune pancreatitis [None]
  - Immunoglobulin G4 related disease [None]

NARRATIVE: CASE EVENT DATE: 20180526
